FAERS Safety Report 4519682-9 (Version None)
Quarter: 2004Q4

REPORT INFORMATION
  Report Type: 
  Country: None (occurrence: None)
  Receive Date: 20041206
  Receipt Date: 20041118
  Transmission Date: 20050328
  Serious: Yes (Other)
  Sender: FDA-Public Use
  Company Number: PHBS2004CA15688

PATIENT
  Age: 55 Year
  Sex: Male

DRUGS (18)
  1. APO-FLURAZEPAM [Concomitant]
     Indication: INSOMNIA
     Dosage: 300 MG, QHS
     Route: 048
  2. DOCUSATE SODIUM [Concomitant]
     Dosage: 100 MG, QD
     Route: 048
  3. UREMOL [Concomitant]
     Dosage: 2 OR 3 TIMES PER DAY
  4. 29 VITAMINS+MINERALS [Concomitant]
  5. CELESTODERM [Concomitant]
     Dosage: UNK, BID
  6. LORAZEPAM [Concomitant]
     Indication: ANXIETY
     Dosage: 2 MG EVERY 4 - 6 HOURS
  7. CLOZARIL [Suspect]
     Indication: MEDICATION ERROR
     Dosage: 200 MG, ONCE/SINGLE
     Route: 048
     Dates: start: 20041117, end: 20041117
  8. ZYPREXA [Concomitant]
     Dosage: 27.5 MG/D
     Route: 048
     Dates: end: 20041117
  9. CARBOLITH [Concomitant]
     Dosage: 900 MG/D
     Route: 048
  10. HISTANTIL [Concomitant]
     Dosage: 50 MG, QHS
     Route: 048
  11. TEMAZEPAM [Concomitant]
     Dosage: 30 MG, PRN
     Route: 048
  12. CELEXA [Concomitant]
     Dosage: 5 MG IN THE MORNING
     Route: 048
  13. VALPROIC ACID [Concomitant]
     Dosage: 3 TABLETS/D
     Route: 048
  14. LIPIDIL [Concomitant]
     Dosage: 160 MG/D
     Route: 065
  15. PANTOPRAZOLE SODIUM [Concomitant]
     Dosage: 40 MG, QD
     Route: 048
  16. COLACE [Concomitant]
     Dosage: 100 MG/D
     Route: 048
  17. ATIVAN [Concomitant]
     Dosage: UNK, PRN
     Route: 065
  18. CHLORPROMAZINE [Concomitant]
     Dosage: UNK, PRN
     Route: 065

REACTIONS (9)
  - ACCIDENTAL EXPOSURE [None]
  - ALCOHOL USE [None]
  - FATIGUE [None]
  - HYPOKINESIA [None]
  - MEDICATION ERROR [None]
  - PSYCHOMOTOR RETARDATION [None]
  - SOMNOLENCE [None]
  - VOMITING [None]
  - WHITE BLOOD CELL COUNT DECREASED [None]
